FAERS Safety Report 6656252-0 (Version None)
Quarter: 2010Q1

REPORT INFORMATION
  Report Type: 
  Country: None (occurrence: None)
  Receive Date: 20100329
  Receipt Date: 20100323
  Transmission Date: 20100710
  Serious: Yes (Death, Life-Threatening, Hospitalization, Other)
  Sender: FDA-Public Use
  Company Number: US-ELI_LILLY_AND_COMPANY-US201002007350

PATIENT
  Sex: Female
  Weight: 88.435 kg

DRUGS (6)
  1. GEMCITABINE HCL [Suspect]
     Indication: NEOPLASM MALIGNANT
     Dosage: 1770 MG, DAYS 1 AND 8, EVERY 21 DAYS
     Route: 042
     Dates: start: 20060215
  2. IRINOTECAN HCL [Concomitant]
     Indication: NEOPLASM MALIGNANT
     Dosage: 177 MG, DAYS 1 AND 8, EVERY 21 DAYS
     Route: 042
     Dates: start: 20060215
  3. MAGNESIUM CITRATE [Concomitant]
  4. PEPCID [Concomitant]
  5. METFORMIN HYDROCHLORIDE [Concomitant]
  6. PREDNISONE TAB [Concomitant]

REACTIONS (15)
  - ABDOMINAL DISTENSION [None]
  - ABDOMINAL PAIN [None]
  - ABDOMINAL SEPSIS [None]
  - ASCITES [None]
  - ATELECTASIS [None]
  - CARDIO-RESPIRATORY ARREST [None]
  - CONSTIPATION [None]
  - DEHYDRATION [None]
  - DYSPNOEA [None]
  - MALIGNANT NEOPLASM PROGRESSION [None]
  - PNEUMOPERITONEUM [None]
  - RENAL FAILURE ACUTE [None]
  - SEPTIC SHOCK [None]
  - UROSEPSIS [None]
  - VOMITING [None]
